FAERS Safety Report 8150814-X (Version None)
Quarter: 2012Q1

REPORT INFORMATION
  Report Type: 
  Country: None (occurrence: None)
  Receive Date: 20120220
  Receipt Date: 20120214
  Transmission Date: 20120608
  Serious: Yes (Hospitalization)
  Sender: FDA-Public Use
  Company Number: FR-PFIZER INC-K201100834

PATIENT
  Age: 69 Year
  Sex: Female

DRUGS (8)
  1. ALDALIX [Suspect]
     Indication: HYPERTENSION
     Dosage: 1 DF, 1X/DAY
     Route: 048
     Dates: end: 20060321
  2. GLIPIZIDE [Suspect]
     Indication: TYPE 2 DIABETES MELLITUS
     Dosage: UNK
     Route: 048
     Dates: end: 20060321
  3. IRBESARTAN [Suspect]
     Indication: HYPERTENSION
     Dosage: 300 MG, 1X/DAY
     Route: 048
  4. VERAPAMIL [Suspect]
     Indication: HYPERTENSION
     Dosage: 240 MG, 1X/DAY
     Route: 048
     Dates: end: 20060321
  5. MEDIATENSYL [Concomitant]
     Dosage: UNK
  6. CO-TRIATEC [Suspect]
     Indication: HYPERTENSION
     Dosage: 5 MG, 1X/DAY
     Route: 048
  7. LASIX [Concomitant]
     Dosage: UNK
     Dates: end: 20060301
  8. GLUCOPHAGE [Suspect]
     Indication: DIABETES MELLITUS
     Dosage: 850 MG, 1X/DAY
     Route: 048
     Dates: end: 20060321

REACTIONS (9)
  - RENAL FAILURE ACUTE [None]
  - GASTRIC ULCER HAEMORRHAGE [None]
  - HYPERKALAEMIA [None]
  - ANAEMIA [None]
  - RENAL ARTERY THROMBOSIS [None]
  - RENAL ARTERY STENOSIS [None]
  - CARDIOMYOPATHY [None]
  - LUNG DISORDER [None]
  - METABOLIC ACIDOSIS [None]
